FAERS Safety Report 5700072-8 (Version None)
Quarter: 2008Q2

REPORT INFORMATION
  Report Type: 
  Country: None (occurrence: None)
  Receive Date: 20080410
  Receipt Date: 20080404
  Transmission Date: 20081010
  Serious: Yes (Other)
  Sender: FDA-Public Use
  Company Number: US-BAYER-200811005BCC

PATIENT
  Age: 26 Year
  Sex: Female
  Weight: 73 kg

DRUGS (2)
  1. CAMPHO-PHENIQUE LIQUID [Suspect]
     Indication: OPEN WOUND
     Route: 061
  2. ASPIRIN [Suspect]
     Indication: HEADACHE

REACTIONS (8)
  - APPLICATION SITE PAIN [None]
  - BLOOD CHOLESTEROL INCREASED [None]
  - CERVIX CARCINOMA [None]
  - DIABETES MELLITUS [None]
  - LENTIGO [None]
  - OVARIAN MASS [None]
  - THYROID DISORDER [None]
  - WEIGHT INCREASED [None]
